FAERS Safety Report 8263639-1 (Version None)
Quarter: 2012Q2

REPORT INFORMATION
  Report Type: 
  Country: None (occurrence: None)
  Receive Date: 20120405
  Receipt Date: 20120322
  Transmission Date: 20120825
  Serious: Yes (Hospitalization, Other)
  Sender: FDA-Public Use
  Company Number: CA-INCYTE CORPORATION-2012IN000484

PATIENT
  Sex: Female
  Weight: 83 kg

DRUGS (2)
  1. INC424 [Suspect]
     Indication: POLYCYTHAEMIA
     Dosage: 20 MG, BID
     Route: 048
     Dates: start: 20120104, end: 20120321
  2. RANITIDINE [Concomitant]
     Dosage: UNK
     Dates: start: 20120314

REACTIONS (2)
  - OPTIC ISCHAEMIC NEUROPATHY [None]
  - ATRIAL FIBRILLATION [None]
